FAERS Safety Report 10011595 (Version 1)
Quarter: 2014Q1

REPORT INFORMATION
  Report Type: Spontaneous
  Country: US (occurrence: None)
  Receive Date: 20140313
  Receipt Date: 20140313
  Transmission Date: 20141002
  Serious: Yes (Other)
  Sender: FDA-Public Use
  Company Number: None

PATIENT
  Age: 68 Year
  Sex: Male

DRUGS (1)
  1. XTANDI 40MG ASTELLA PHARMA [Suspect]
     Indication: PROSTATE CANCER
     Dosage: 4 TABS QD PO
     Route: 048
     Dates: start: 20131108, end: 20140226

REACTIONS (2)
  - Myalgia [None]
  - Therapy cessation [None]
